FAERS Safety Report 7623182-7 (Version None)
Quarter: 2011Q3

REPORT INFORMATION
  Report Type: 
  Country: None (occurrence: None)
  Receive Date: 20110720
  Receipt Date: 20110706
  Transmission Date: 20111222
  Serious: Yes (Hospitalization)
  Sender: FDA-Public Use
  Company Number: US-JNJFOC-20110505151

PATIENT
  Sex: Female
  Weight: 76.2 kg

DRUGS (7)
  1. ASPIRIN [Concomitant]
     Indication: ANTICOAGULANT THERAPY
     Route: 065
  2. NEOSPORIN [Suspect]
     Indication: PAIN IN EXTREMITY
     Route: 061
     Dates: start: 20110509, end: 20110509
  3. CENTRUM MULTIVITAMINS [Concomitant]
     Indication: VITAMIN SUPPLEMENTATION
     Route: 065
  4. LIDOCAINE [Suspect]
     Indication: FOOT OPERATION
     Route: 065
     Dates: start: 20110509
  5. FISH OIL [Concomitant]
     Indication: MEDICAL DIET
     Route: 065
  6. CRANBERRY PILL [Concomitant]
     Indication: PRODUCT USED FOR UNKNOWN INDICATION
     Route: 065
  7. PRILOSEC [Concomitant]
     Indication: GASTROOESOPHAGEAL REFLUX DISEASE
     Route: 065

REACTIONS (5)
  - DIZZINESS [None]
  - NAUSEA [None]
  - THROAT IRRITATION [None]
  - BURNING SENSATION [None]
  - OFF LABEL USE [None]
